FAERS Safety Report 7371492-3 (Version None)
Quarter: 2011Q1

REPORT INFORMATION
  Report Type: 
  Country: None (occurrence: None)
  Receive Date: 20110322
  Receipt Date: 20110322
  Transmission Date: 20110831
  Serious: Yes (Life-Threatening, Hospitalization, Disabling)
  Sender: FDA-Public Use
  Company Number: None

PATIENT
  Age: 16 Year
  Sex: Female
  Weight: 68.0396 kg

DRUGS (1)
  1. DEPO-PROVERA [Suspect]
     Indication: CONTRACEPTION
     Dosage: 150 MG EVERY 3 MONTHS IM
     Route: 030
     Dates: start: 20101207

REACTIONS (3)
  - GRAND MAL CONVULSION [None]
  - POSTICTAL STATE [None]
  - UNRESPONSIVE TO STIMULI [None]
